FAERS Safety Report 11081778 (Version 2)
Quarter: 2015Q2

REPORT INFORMATION
  Report Type: Spontaneous
  Country: DE (occurrence: DE)
  Receive Date: 20150501
  Receipt Date: 20150625
  Transmission Date: 20150821
  Serious: Yes (Hospitalization, Other)
  Sender: FDA-Public Use
  Company Number: DE-GILEAD-2015-0150769

PATIENT
  Age: 43 Year
  Sex: Male

DRUGS (1)
  1. HARVONI [Suspect]
     Active Substance: LEDIPASVIR\SOFOSBUVIR
     Indication: CHRONIC HEPATITIS C
     Dosage: UNK
     Route: 048
     Dates: start: 20150312

REACTIONS (4)
  - Joint swelling [Not Recovered/Not Resolved]
  - Arthritis [Unknown]
  - Joint effusion [Not Recovered/Not Resolved]
  - Joint warmth [Not Recovered/Not Resolved]

NARRATIVE: CASE EVENT DATE: 20150401
